FAERS Safety Report 20892058 (Version 4)
Quarter: 2022Q4

REPORT INFORMATION
  Report Type: Report from Study
  Country: US (occurrence: US)
  Receive Date: 20220530
  Receipt Date: 20221114
  Transmission Date: 20230113
  Serious: Yes (Hospitalization, Other)
  Sender: FDA-Public Use
  Company Number: US-BRISTOL-MYERS SQUIBB COMPANY-2022-042209

PATIENT
  Age: 86 Year
  Sex: Male
  Weight: 113.85 kg

DRUGS (16)
  1. REVLIMID [Suspect]
     Active Substance: LENALIDOMIDE
     Indication: Plasma cell myeloma
     Dosage: 30-SEP-2024 (DAILY - 21 OF 28 DAYS)
     Route: 048
     Dates: start: 201905
  2. REVLIMID [Suspect]
     Active Substance: LENALIDOMIDE
     Route: 048
  3. ELIQUIS [Suspect]
     Active Substance: APIXABAN
     Indication: Product used for unknown indication
     Route: 065
  4. ACETAMINOPHEN\HYDROCODONE [Concomitant]
     Active Substance: ACETAMINOPHEN\HYDROCODONE
  5. PREDNISONE [Concomitant]
     Active Substance: PREDNISONE
  6. DEXAMETHASONE [Concomitant]
     Active Substance: DEXAMETHASONE
  7. FLOMAX [Concomitant]
     Active Substance: TAMSULOSIN HYDROCHLORIDE
  8. TAMSULOSIN [Concomitant]
     Active Substance: TAMSULOSIN
  9. CHOLESTYRAMINE [Concomitant]
     Active Substance: CHOLESTYRAMINE
  10. SPIRONOLACTONE [Concomitant]
     Active Substance: SPIRONOLACTONE
  11. PANTOPRAZOLE SODIUM [Concomitant]
     Active Substance: PANTOPRAZOLE SODIUM
  12. BICALUTAMIDE [Concomitant]
     Active Substance: BICALUTAMIDE
  13. MYRBETRIQ [Concomitant]
     Active Substance: MIRABEGRON
  14. BUMETANIDE [Concomitant]
     Active Substance: BUMETANIDE
  15. Ocuvite adult [Concomitant]
  16. POTASSIUM CHLORIDE [Concomitant]
     Active Substance: POTASSIUM CHLORIDE

REACTIONS (10)
  - Intestinal obstruction [Unknown]
  - Arthritis [Recovered/Resolved]
  - Gout [Unknown]
  - Diarrhoea [Unknown]
  - Limb mass [Unknown]
  - Hypotension [Unknown]
  - Blood potassium decreased [Unknown]
  - Pain in extremity [Recovered/Resolved]
  - Gait inability [Recovered/Resolved]
  - Product dose omission issue [Unknown]

NARRATIVE: CASE EVENT DATE: 20220201
